FAERS Safety Report 25446752 (Version 1)
Quarter: 2025Q2

REPORT INFORMATION
  Report Type: Spontaneous
  Country: US (occurrence: None)
  Receive Date: 20250617
  Receipt Date: 20250617
  Transmission Date: 20250717
  Serious: Yes (Other)
  Sender: FDA-CTU
  Company Number: None

PATIENT
  Age: 8 Year
  Sex: Male
  Weight: 31.5 kg

DRUGS (1)
  1. AVOBENZONE\HOMOSALATE\OCTISALATE [Suspect]
     Active Substance: AVOBENZONE\HOMOSALATE\OCTISALATE
     Indication: Prophylaxis against solar radiation
     Dates: start: 20250616, end: 20250616

REACTIONS (2)
  - Rash [None]
  - Rash [None]

NARRATIVE: CASE EVENT DATE: 20250616
